FAERS Safety Report 14186261 (Version 2)
Quarter: 2019Q3

REPORT INFORMATION
  Report Type: Spontaneous
  Country: CA (occurrence: CA)
  Receive Date: 20171114
  Receipt Date: 20190813
  Transmission Date: 20191004
  Serious: Yes (Other)
  Sender: FDA-Public Use
  Company Number: CA-IPCA LABORATORIES LIMITED-IPC-2017-CA-003493

PATIENT

DRUGS (6)
  1. WARFARIN [Suspect]
     Active Substance: WARFARIN
     Indication: CEREBRAL HAEMORRHAGE
     Dosage: UNK
     Route: 048
  2. WARFARIN [Suspect]
     Active Substance: WARFARIN
     Indication: TRANSVERSE SINUS THROMBOSIS
  3. HEPARIN [Suspect]
     Active Substance: HEPARIN SODIUM
     Indication: CEREBRAL HAEMORRHAGE
     Dosage: UNK
     Route: 042
  4. HEPARIN [Suspect]
     Active Substance: HEPARIN SODIUM
     Indication: SUPERIOR SAGITTAL SINUS THROMBOSIS
  5. HEPARIN [Suspect]
     Active Substance: HEPARIN SODIUM
     Indication: TRANSVERSE SINUS THROMBOSIS
  6. WARFARIN [Suspect]
     Active Substance: WARFARIN
     Indication: SUPERIOR SAGITTAL SINUS THROMBOSIS

REACTIONS (1)
  - Subdural haematoma [Recovered/Resolved]
